FAERS Safety Report 6567118-9 (Version None)
Quarter: 2010Q1

REPORT INFORMATION
  Report Type: 
  Country: None (occurrence: None)
  Receive Date: 20100202
  Receipt Date: 20100125
  Transmission Date: 20100710
  Serious: Yes (Other)
  Sender: FDA-Public Use
  Company Number: BE-PFIZER INC-2010009616

PATIENT
  Age: 61 Year
  Sex: Male

DRUGS (6)
  1. TOVIAZ [Suspect]
     Dosage: 8 MG, 1X/DAY
     Route: 048
     Dates: start: 20091201
  2. LYRICA [Concomitant]
     Dosage: UNK
  3. SYSCOR [Concomitant]
     Dosage: UNK
  4. TICLID [Concomitant]
     Dosage: UNK
  5. TEVETEN [Concomitant]
     Dosage: UNK
  6. ATENOLOL [Concomitant]
     Dosage: UNK

REACTIONS (1)
  - CHROMATURIA [None]
